FAERS Safety Report 4577911-X (Version None)
Quarter: 2005Q1

REPORT INFORMATION
  Report Type: 
  Country: None (occurrence: None)
  Receive Date: 20050209
  Receipt Date: 20050124
  Transmission Date: 20050727
  Serious: Yes (Other)
  Sender: FDA-Public Use
  Company Number: GBS041216287

PATIENT
  Age: 31 Year
  Sex: Male

DRUGS (1)
  1. PROZAC [Suspect]
     Indication: DEPRESSION
     Dosage: 20 MG DAY
     Dates: start: 20041101

REACTIONS (3)
  - ACCOMMODATION DISORDER [None]
  - ANXIETY [None]
  - VISION BLURRED [None]
